FAERS Safety Report 6244098-7 (Version None)
Quarter: 2009Q2

REPORT INFORMATION
  Report Type: 
  Country: None (occurrence: None)
  Receive Date: 20090625
  Receipt Date: 20090611
  Transmission Date: 20091009
  Serious: Yes (Other)
  Sender: FDA-Public Use
  Company Number: US-RANBAXY-2009RR-24978

PATIENT
  Age: 34 Year
  Sex: Male

DRUGS (3)
  1. ONDANSETRON [Suspect]
     Dosage: 2 MG, UNK
     Route: 042
  2. DESFLURANE [Suspect]
  3. METOCLOPRAMIDE-BP [Suspect]

REACTIONS (1)
  - ARRHYTHMIA [None]
